FAERS Safety Report 9643827 (Version 2)
Quarter: 2014Q1

REPORT INFORMATION
  Report Type: Report from Study
  Country: US (occurrence: US)
  Receive Date: 20131024
  Receipt Date: 20140303
  Transmission Date: 20141002
  Serious: Yes (Hospitalization)
  Sender: FDA-Public Use
  Company Number: US-ABBVIE-13P-163-1160504-00

PATIENT
  Age: 50 Year
  Sex: Female
  Weight: 115.32 kg

DRUGS (11)
  1. HUMIRA [Suspect]
     Indication: CROHN^S DISEASE
     Dates: start: 20131003
  2. PENTASA [Concomitant]
     Indication: CROHN^S DISEASE
     Dosage: 250MG (8) CAPSULES
  3. OMEPRAZOLE [Concomitant]
     Indication: CROHN^S DISEASE
  4. CALCIUM CARBONATE [Concomitant]
     Indication: MINERAL SUPPLEMENTATION
  5. CARVEDILOL [Concomitant]
     Indication: HYPERTENSION
  6. LISINOPRIL [Concomitant]
     Indication: HYPERTENSION
  7. VITAMIN B [Concomitant]
     Indication: VITAMIN SUPPLEMENTATION
  8. ASPIRIN [Concomitant]
     Indication: ANTICOAGULANT THERAPY
  9. INVEGA [Concomitant]
     Indication: ABNORMAL BEHAVIOUR
  10. MIRALAX [Concomitant]
     Indication: CONSTIPATION
     Dosage: ONE CAP FULL EVERYDAY
  11. PSYCHOTROPIC MEDS [Concomitant]
     Indication: PRODUCT USED FOR UNKNOWN INDICATION

REACTIONS (6)
  - Intestinal obstruction [Recovered/Resolved]
  - Vomiting [Not Recovered/Not Resolved]
  - Headache [Recovered/Resolved]
  - Abdominal pain [Recovered/Resolved]
  - Nausea [Unknown]
  - Crohn^s disease [Recovered/Resolved]
